FAERS Safety Report 6800992-7 (Version None)
Quarter: 2010Q2

REPORT INFORMATION
  Report Type: 
  Country: None (occurrence: None)
  Receive Date: 20100629
  Receipt Date: 20100621
  Transmission Date: 20101027
  Serious: Yes (Hospitalization)
  Sender: FDA-Public Use
  Company Number: FI-BAXTER-2010BH012393

PATIENT
  Age: 59 Year
  Sex: Male
  Weight: 98 kg

DRUGS (17)
  1. FEIBA [Suspect]
     Indication: HAEMOSTASIS
     Route: 042
     Dates: start: 20100423, end: 20100425
  2. FEIBA [Suspect]
     Indication: FACTOR VIII DEFICIENCY
     Route: 042
     Dates: start: 20100423, end: 20100425
  3. FEIBA [Suspect]
     Indication: FACTOR VIII INHIBITION
     Route: 042
     Dates: start: 20100423, end: 20100425
  4. FEIBA [Suspect]
     Route: 042
     Dates: start: 20100426
  5. FEIBA [Suspect]
     Route: 042
     Dates: start: 20100426
  6. FEIBA [Suspect]
     Route: 042
     Dates: start: 20100426
  7. NOVOSEVEN [Suspect]
     Indication: HAEMOSTASIS
     Route: 042
     Dates: start: 20100421
  8. NOVOSEVEN [Suspect]
     Indication: FACTOR VIII DEFICIENCY
     Route: 042
     Dates: start: 20100421
  9. NOVOSEVEN [Suspect]
     Indication: FACTOR VIII INHIBITION
     Route: 042
     Dates: start: 20100421
  10. CAPRILON [Suspect]
     Indication: HAEMOSTASIS
     Dates: start: 20100421
  11. CAPRILON [Suspect]
     Indication: FACTOR VIII DEFICIENCY
     Dates: start: 20100421
  12. CAPRILON [Suspect]
     Indication: FACTOR VIII INHIBITION
     Dates: start: 20100421
  13. SELOKEN ZOC [Concomitant]
  14. ATACAND [Concomitant]
  15. AMLODIPINE [Concomitant]
  16. IDEOS [Concomitant]
  17. SOMAC [Concomitant]

REACTIONS (1)
  - ILEUS PARALYTIC [None]
